FAERS Safety Report 13876883 (Version 1)
Quarter: 2017Q3

REPORT INFORMATION
  Report Type: Report from Study
  Country: IT (occurrence: IT)
  Receive Date: 20170817
  Receipt Date: 20170817
  Transmission Date: 20171127
  Serious: Yes (Other)
  Sender: FDA-Public Use
  Company Number: IT-TEVA-791512ACC

PATIENT
  Age: 80 Year
  Sex: Female

DRUGS (1)
  1. LORAZEPAM. [Suspect]
     Active Substance: LORAZEPAM
     Indication: ANXIETY
     Dosage: 1 DF AS NECESSARY
     Route: 048
     Dates: start: 20170710, end: 20170710

REACTIONS (6)
  - Dysarthria [Recovered/Resolved]
  - Bradyphrenia [Recovered/Resolved]
  - Vertigo [Recovered/Resolved]
  - Psychomotor retardation [Recovered/Resolved]
  - Slow speech [Recovered/Resolved]
  - Confusional state [Recovered/Resolved]

NARRATIVE: CASE EVENT DATE: 20170710
